FAERS Safety Report 4375643-4 (Version None)
Quarter: 2004Q2

REPORT INFORMATION
  Report Type: 
  Country: None (occurrence: None)
  Receive Date: 20040610
  Receipt Date: 20040319
  Transmission Date: 20050107
  Serious: Yes (Hospitalization)
  Sender: FDA-Public Use
  Company Number: US-GLAXOSMITHKLINE-A0504005A

PATIENT
  Age: 13 Year
  Sex: Male
  Weight: 102.3 kg

DRUGS (6)
  1. PAXIL [Suspect]
     Dosage: 30MG PER DAY
     Route: 048
     Dates: start: 20010329
  2. FLONASE [Concomitant]
     Route: 045
  3. MYLANTA [Concomitant]
  4. INTAL [Concomitant]
     Dosage: 2PUFF PER DAY
     Route: 055
  5. DDAVP [Concomitant]
     Indication: ENURESIS
     Dosage: 1TAB PER DAY
     Route: 048
  6. ALBUTEROL [Concomitant]
     Dosage: 2PUFF AS REQUIRED
     Route: 055

REACTIONS (7)
  - DIZZINESS [None]
  - DRUG WITHDRAWAL SYNDROME [None]
  - MALAISE [None]
  - OVERDOSE [None]
  - SELF MUTILATION [None]
  - SUICIDAL IDEATION [None]
  - SUICIDE ATTEMPT [None]
